FAERS Safety Report 23438461 (Version 3)
Quarter: 2024Q1

REPORT INFORMATION
  Report Type: Spontaneous
  Country: CO (occurrence: CO)
  Receive Date: 20240124
  Receipt Date: 20240310
  Transmission Date: 20240410
  Serious: Yes (Other)
  Sender: FDA-Public Use
  Company Number: CO-002147023-PHHY2015CO045179

PATIENT
  Age: 44 Year
  Sex: Female
  Weight: 62 kg

DRUGS (19)
  1. LOSARTAN [Suspect]
     Active Substance: LOSARTAN
     Indication: Hypertension
     Dosage: 100 MG, Q12H
     Route: 048
     Dates: start: 2010
  2. LOSARTAN [Suspect]
     Active Substance: LOSARTAN
     Dosage: 50 MG, Q12H
     Route: 048
     Dates: start: 2011
  3. METOPROLOL [Suspect]
     Active Substance: METOPROLOL
     Dosage: 50 MG, QD
     Route: 048
     Dates: start: 2011
  4. METOPROLOL [Suspect]
     Active Substance: METOPROLOL
     Indication: Hypertension
     Dosage: 50 MG, Q12H
     Route: 048
  5. TASIGNA [Suspect]
     Active Substance: NILOTINIB
     Dosage: 200 MG, Q12H
     Route: 048
     Dates: start: 20130320
  6. TASIGNA [Suspect]
     Active Substance: NILOTINIB
     Indication: Chronic myeloid leukaemia
     Dosage: 200 MG, BID (IN THE MORNING AND AT NIGHT)
     Route: 048
     Dates: start: 2012
  7. TASIGNA [Suspect]
     Active Substance: NILOTINIB
     Dosage: 200 MG, BID (IN THE MORNING AND AT NIGHT)
     Route: 048
  8. TASIGNA [Suspect]
     Active Substance: NILOTINIB
     Dosage: 300 MG, Q12H
     Route: 048
  9. TASIGNA [Suspect]
     Active Substance: NILOTINIB
     Dosage: 400 MG, Q12H
     Route: 048
     Dates: start: 20100201
  10. TASIGNA [Suspect]
     Active Substance: NILOTINIB
     Dosage: 400 MG, Q12H
     Route: 048
  11. TASIGNA [Suspect]
     Active Substance: NILOTINIB
     Dosage: 800 MG, QD
     Route: 048
     Dates: start: 20100201
  12. TASIGNA [Suspect]
     Active Substance: NILOTINIB
     Dosage: 800 MG, QD
     Route: 048
     Dates: start: 201003, end: 202310
  13. TASIGNA [Suspect]
     Active Substance: NILOTINIB
     Dosage: 800 MG, QD
     Route: 048
  14. TASIGNA [Suspect]
     Active Substance: NILOTINIB
     Dosage: UNK
     Route: 048
  15. ASPIRIN [Concomitant]
     Active Substance: ASPIRIN
     Indication: Cardiovascular disorder
     Dosage: 100 MG, QD
     Route: 065
     Dates: start: 2015
  16. ATORVASTATIN [Concomitant]
     Active Substance: ATORVASTATIN
     Indication: Coronary artery disease
     Dosage: 2 DF, QHS (AT NIGHT)
     Route: 065
     Dates: start: 20160901
  17. ATORVASTATIN [Concomitant]
     Active Substance: ATORVASTATIN
     Indication: Blood cholesterol abnormal
     Dosage: 40 MG, QD
     Route: 048
  18. HYDROCHLOROTHIAZIDE [Concomitant]
     Active Substance: HYDROCHLOROTHIAZIDE
     Indication: Hypertension
     Dosage: 25 MG, QD
     Route: 048
     Dates: start: 2011
  19. HYDROCHLOROTHIAZIDE [Concomitant]
     Active Substance: HYDROCHLOROTHIAZIDE
     Dosage: 25 MG, QD (AT BREAKFAST)
     Route: 048
     Dates: start: 2015

REACTIONS (40)
  - Cardiac disorder [Unknown]
  - Coronary artery disease [Unknown]
  - Hypertensive crisis [Unknown]
  - Glaucoma [Unknown]
  - Arterial occlusive disease [Unknown]
  - Liver disorder [Unknown]
  - Fungal infection [Unknown]
  - Thirst [Unknown]
  - Aphonia [Unknown]
  - Peripheral swelling [Unknown]
  - Blood triglycerides abnormal [Unknown]
  - Blood cholesterol abnormal [Unknown]
  - Blood thyroid stimulating hormone abnormal [Unknown]
  - Disturbance in social behaviour [Unknown]
  - Cardiac stress test abnormal [Unknown]
  - Psychiatric symptom [Unknown]
  - Localised oedema [Unknown]
  - Mouth ulceration [Unknown]
  - Rash pruritic [Unknown]
  - Pain [Unknown]
  - Nausea [Unknown]
  - Malaise [Unknown]
  - Blood bilirubin increased [Unknown]
  - Chest discomfort [Not Recovered/Not Resolved]
  - Dyspnoea [Unknown]
  - Chest pain [Unknown]
  - Tongue ulceration [Unknown]
  - Decreased appetite [Unknown]
  - Pyrexia [Unknown]
  - Gait disturbance [Unknown]
  - Cytogenetic analysis abnormal [Unknown]
  - Influenza [Unknown]
  - Cough [Unknown]
  - Fatigue [Not Recovered/Not Resolved]
  - Alopecia [Unknown]
  - Skin lesion [Unknown]
  - Chills [Unknown]
  - Product availability issue [Recovered/Resolved]
  - Product dose omission issue [Unknown]
  - Inappropriate schedule of product administration [Unknown]

NARRATIVE: CASE EVENT DATE: 20100201
